FAERS Safety Report 17511043 (Version 1)
Quarter: 2020Q1

REPORT INFORMATION
  Report Type: Spontaneous
  Country: US (occurrence: US)
  Receive Date: 20200306
  Receipt Date: 20200306
  Transmission Date: 20200409
  Serious: Yes (Hospitalization, Other)
  Sender: FDA-Public Use
  Company Number: None

PATIENT
  Age: 62 Year
  Sex: Male
  Weight: 93.6 kg

DRUGS (8)
  1. ATORVASTATIN CALCIUM. [Concomitant]
     Active Substance: ATORVASTATIN CALCIUM
  2. AMLODIPINE BESYLATE. [Concomitant]
     Active Substance: AMLODIPINE BESYLATE
  3. DOXYCYCLINE HYCLATE 100 MG TAB [Suspect]
     Active Substance: DOXYCYCLINE HYCLATE
     Indication: NECK MASS
     Dosage: ?          QUANTITY:14 TABLET(S);?
     Route: 048
  4. CALCIUM CITRATE [Concomitant]
     Active Substance: CALCIUM CITRATE
  5. MULTI VITAMIN [Concomitant]
     Active Substance: VITAMINS
  6. MAGNESIUM [Concomitant]
     Active Substance: MAGNESIUM
  7. ATENOLOL. [Concomitant]
     Active Substance: ATENOLOL
  8. ZINC. [Concomitant]
     Active Substance: ZINC

REACTIONS (9)
  - Speech disorder [None]
  - Partial seizures [None]
  - Vomiting [None]
  - Muscular weakness [None]
  - Tinnitus [None]
  - Tremor [None]
  - Visual impairment [None]
  - Memory impairment [None]
  - Depressed level of consciousness [None]

NARRATIVE: CASE EVENT DATE: 20200228
